FAERS Safety Report 24313005 (Version 5)
Quarter: 2025Q1

REPORT INFORMATION
  Report Type: Report from Study
  Country: ES (occurrence: ES)
  Receive Date: 20240912
  Receipt Date: 20250121
  Transmission Date: 20250408
  Serious: Yes (Hospitalization)
  Sender: TAKEDA
  Company Number: ES-TAKEDA-2024TUS050708

PATIENT
  Age: 5 Year
  Sex: Male

DRUGS (12)
  1. TEDUGLUTIDE [Suspect]
     Active Substance: TEDUGLUTIDE
     Indication: Short-bowel syndrome
     Dosage: 0.3 MILLIGRAM, QD
     Dates: start: 202109, end: 20220425
  2. TEDUGLUTIDE [Suspect]
     Active Substance: TEDUGLUTIDE
     Dosage: 0.35 MILLIGRAM, QD
     Dates: start: 20220425, end: 20240115
  3. TEDUGLUTIDE [Suspect]
     Active Substance: TEDUGLUTIDE
     Dosage: 0.4 MILLIGRAM, QD
     Dates: start: 20240115, end: 20240826
  4. TEDUGLUTIDE [Suspect]
     Active Substance: TEDUGLUTIDE
     Dosage: 0.5 MILLIGRAM, QD
     Dates: start: 20240826
  5. URSODIOL [Concomitant]
     Active Substance: URSODIOL
     Indication: Cholestasis
     Dosage: 37.5 MILLIGRAM, TID
     Dates: start: 20210419, end: 20220425
  6. URSODIOL [Concomitant]
     Active Substance: URSODIOL
     Dosage: 45 MILLIGRAM, TID
     Dates: start: 20220425, end: 20240115
  7. HIBOR [Concomitant]
     Indication: Thrombosis
     Dosage: 2000 INTERNATIONAL UNIT, QD
     Dates: start: 20240115
  8. Salvacolina [Concomitant]
     Indication: Antidiarrhoeal supportive care
     Dosage: 0.36 MILLIGRAM, BID
     Dates: start: 20231113, end: 20240115
  9. FUROSEMIDE [Concomitant]
     Active Substance: FUROSEMIDE
     Indication: Hypophosphataemia
     Dates: start: 20250104, end: 20250104
  10. CEFAZOLIN [Concomitant]
     Active Substance: CEFAZOLIN
     Indication: Vascular device infection
  11. TEICOPLANIN [Concomitant]
     Active Substance: TEICOPLANIN
     Indication: Vascular device infection
     Dates: start: 20250102, end: 20250103
  12. VANCOMYCIN [Concomitant]
     Active Substance: VANCOMYCIN
     Indication: Vascular device infection
     Dates: start: 20250101, end: 20250102

REACTIONS (7)
  - Dehydration [Recovered/Resolved]
  - Bronchospasm [Recovered/Resolved]
  - Catarrh [Recovered/Resolved]
  - Frequent bowel movements [Recovered/Resolved]
  - Thyroxine decreased [Recovered/Resolved]
  - High density lipoprotein decreased [Not Recovered/Not Resolved]
  - Vomiting [Recovered/Resolved]

NARRATIVE: CASE EVENT DATE: 20240401
